FAERS Safety Report 16215581 (Version 1)
Quarter: 2019Q2

REPORT INFORMATION
  Report Type: Spontaneous
  Country: DE (occurrence: DE)
  Receive Date: 20190419
  Receipt Date: 20190419
  Transmission Date: 20190711
  Serious: Yes (Hospitalization, Other)
  Sender: FDA-Public Use
  Company Number: DE-SUN PHARMACEUTICAL INDUSTRIES LTD-2019RR-205681

PATIENT
  Age: 67 Year
  Sex: Male

DRUGS (6)
  1. IBUPROFEN. [Suspect]
     Active Substance: IBUPROFEN
     Indication: NASOPHARYNGITIS
     Dosage: UNK
     Route: 065
  2. HYPNOREX [Suspect]
     Active Substance: LITHIUM CARBONATE
     Dosage: 1 GRAM
     Route: 065
     Dates: start: 2000
  3. LISINOPRIL. [Suspect]
     Active Substance: LISINOPRIL
     Indication: HYPERTENSION
     Dosage: 20 MILLIGRAM, UNK
     Route: 065
     Dates: start: 2001
  4. HYPNOREX [Suspect]
     Active Substance: LITHIUM CARBONATE
     Indication: BIPOLAR DISORDER
     Dosage: 1.2 GRAM, DAILY
     Route: 065
     Dates: start: 2001
  5. HYPNOREX [Suspect]
     Active Substance: LITHIUM CARBONATE
     Dosage: 0.8 GRAM
     Route: 065
     Dates: start: 1998
  6. QUILONUM [Suspect]
     Active Substance: LITHIUM
     Indication: BIPOLAR DISORDER
     Dosage: 1.35 GRAM, DAILY
     Route: 065
     Dates: start: 2005

REACTIONS (11)
  - Self-medication [Unknown]
  - Disorientation [Recovering/Resolving]
  - Toxicity to various agents [Recovering/Resolving]
  - Apraxia [Recovering/Resolving]
  - Tremor [Recovering/Resolving]
  - Ataxia [Recovering/Resolving]
  - Delirium [Recovering/Resolving]
  - Dysphagia [Recovering/Resolving]
  - Agitation [Recovering/Resolving]
  - Hypomania [Unknown]
  - Aphasia [Recovering/Resolving]
